FAERS Safety Report 10333797 (Version 2)
Quarter: 2014Q3

REPORT INFORMATION
  Report Type: Spontaneous
  Country: JP (occurrence: JP)
  Receive Date: 20140723
  Receipt Date: 20140723
  Transmission Date: 20150326
  Serious: Yes (Other)
  Sender: FDA-Public Use
  Company Number: JP-RANBAXY-2014R1-83302

PATIENT
  Age: 67 Year
  Sex: Female

DRUGS (1)
  1. CROTAMITON [Suspect]
     Active Substance: CROTAMITON
     Indication: PRODUCT USED FOR UNKNOWN INDICATION
     Dosage: UNK
     Route: 061

REACTIONS (2)
  - Benign familial pemphigus [Recovering/Resolving]
  - Gene mutation [Unknown]
